FAERS Safety Report 5854901-8 (Version None)
Quarter: 2008Q3

REPORT INFORMATION
  Report Type: 
  Country: None (occurrence: None)
  Receive Date: 20080822
  Receipt Date: 20080226
  Transmission Date: 20090109
  Serious: No
  Sender: FDA-Public Use
  Company Number: US-ABBOTT-08P-163-0440296-00

PATIENT
  Weight: 52.21 kg

DRUGS (13)
  1. SYNTHROID [Suspect]
     Indication: HYPOTHYROIDISM
     Route: 048
     Dates: start: 20071101
  2. AMLODIPINE [Concomitant]
     Indication: HYPERTENSION
     Route: 048
  3. LISINOPRIL [Concomitant]
     Indication: HYPERTENSION
     Route: 048
  4. ATORVASTATIN CALCIUM [Concomitant]
     Indication: BLOOD CHOLESTEROL INCREASED
     Route: 048
  5. LETROZOLE [Concomitant]
     Indication: BREAST CANCER
     Route: 048
  6. RISEDRONATE SODIUM [Concomitant]
     Indication: OSTEOPOROSIS
     Route: 048
  7. METOPROLOL TARTRATE [Concomitant]
     Indication: TACHYCARDIA
     Route: 048
  8. METOPROLOL TARTRATE [Concomitant]
     Indication: HYPERTENSION
  9. ERGOCALCIFEROL [Concomitant]
     Indication: ANAEMIA
  10. THERAGRAN M VITAMIN [Concomitant]
     Indication: DRUG USE FOR UNKNOWN INDICATION
     Route: 048
  11. APPEAREX [Concomitant]
     Indication: ONYCHOLYSIS
  12. CYANOCOBALAMIN [Concomitant]
     Indication: NEUROPATHY PERIPHERAL
     Route: 030
  13. TUMS OTC [Concomitant]
     Indication: OSTEOPOROSIS

REACTIONS (5)
  - ASTHENIA [None]
  - DIZZINESS [None]
  - FEELING JITTERY [None]
  - OROPHARYNGEAL PAIN [None]
  - SINUSITIS [None]
